FAERS Safety Report 18334276 (Version 1)
Quarter: 2020Q4

REPORT INFORMATION
  Report Type: Spontaneous
  Country: IT (occurrence: IT)
  Receive Date: 20201001
  Receipt Date: 20201001
  Transmission Date: 20210113
  Serious: Yes (Other)
  Sender: FDA-Public Use
  Company Number: IT-ABBVIE-20P-083-3552515-00

PATIENT
  Age: 59 Year
  Sex: Male

DRUGS (1)
  1. LUPRON DEPOT [Suspect]
     Active Substance: LEUPROLIDE ACETATE
     Indication: SALIVARY GLAND CANCER
     Dosage: 3.75 MILLIGRAM, MONTHLY
     Route: 065

REACTIONS (3)
  - Metastatic salivary gland cancer [Recovering/Resolving]
  - Product use in unapproved indication [Unknown]
  - Disease progression [Recovering/Resolving]
